FAERS Safety Report 21218733 (Version 3)
Quarter: 2022Q3

REPORT INFORMATION
  Report Type: Report from Study
  Country: JP (occurrence: JP)
  Receive Date: 20220816
  Receipt Date: 20220830
  Transmission Date: 20221027
  Serious: Yes (Hospitalization)
  Sender: FDA-Public Use
  Company Number: JP-PFIZER INC-PV202200042952

PATIENT
  Age: 22 Year
  Sex: Female
  Weight: 42 kg

DRUGS (2)
  1. SIROLIMUS [Suspect]
     Active Substance: SIROLIMUS
     Indication: Lymphangiopathy
     Dosage: 2 MG, DAILY (2 MG,1 D)
     Route: 048
     Dates: start: 20201105
  2. SIROLIMUS [Suspect]
     Active Substance: SIROLIMUS
     Dosage: 1 MG, DAILY (1 MG,1 D)
     Route: 048

REACTIONS (2)
  - Abdominal distension [Recovering/Resolving]
  - Pneumonia [Recovering/Resolving]

NARRATIVE: CASE EVENT DATE: 20201201
